FAERS Safety Report 24788325 (Version 1)
Quarter: 2024Q4

REPORT INFORMATION
  Report Type: Spontaneous
  Country: US (occurrence: None)
  Receive Date: 20241228
  Receipt Date: 20241228
  Transmission Date: 20250115
  Serious: Yes (Hospitalization)
  Sender: Public
  Company Number: None

PATIENT
  Age: 51 Year
  Sex: Male

DRUGS (11)
  1. MYCOPHENOLIC ACID [Suspect]
     Active Substance: MYCOPHENOLIC ACID
     Indication: Renal transplant
     Dosage: OTHER FREQUENCY : 2 TABLETS AND 2 TABLETS IN THE EVENING ;?
  2. ACETAMIN TAB 500MG [Concomitant]
  3. ADDERALLXR CAP10MG [Concomitant]
  4. AMPHET/DEXTR TAB 10MG [Concomitant]
  5. AMPHET/DEXTR TAB 20MG [Concomitant]
  6. ASPIRIN LOW TAB 81 MG EC [Concomitant]
  7. B COMPLEX CAP [Concomitant]
  8. CALCIUM TAB 600MG [Concomitant]
  9. CALCIUM ACETATE [Concomitant]
     Active Substance: CALCIUM ACETATE
  10. CARVEDILOL TAB 3.125MG [Concomitant]
  11. CARVEDILOL [Concomitant]
     Active Substance: CARVEDILOL

REACTIONS (1)
  - Renal transplant [None]

NARRATIVE: CASE EVENT DATE: 20241217
